FAERS Safety Report 5456762-8 (Version None)
Quarter: 2007Q3

REPORT INFORMATION
  Report Type: 
  Country: None (occurrence: None)
  Receive Date: 20070918
  Receipt Date: 20070430
  Transmission Date: 20080115
  Serious: No
  Sender: FDA-Public Use
  Company Number: US-ASTRAZENECA-2006UW26128

PATIENT
  Age: 21 Year
  Sex: Male

DRUGS (5)
  1. SEROQUEL [Suspect]
     Indication: BIPOLAR DISORDER
     Route: 048
     Dates: start: 20030317, end: 20060101
  2. RISPERDAL [Concomitant]
     Dates: start: 20030312, end: 20030410
  3. ZYPREXA [Concomitant]
     Dates: start: 20030317, end: 20060908
  4. TEGRETOL [Concomitant]
  5. DEPAKOTE [Concomitant]

REACTIONS (4)
  - DIABETES MELLITUS [None]
  - HYPERGLYCAEMIA [None]
  - HYPERLIPIDAEMIA [None]
  - OBESITY [None]
